FAERS Safety Report 17836024 (Version 8)
Quarter: 2022Q3

REPORT INFORMATION
  Report Type: Report from Study
  Country: CA (occurrence: CA)
  Receive Date: 20200528
  Receipt Date: 20220922
  Transmission Date: 20221027
  Serious: Yes (Other)
  Sender: FDA-Public Use
  Company Number: None

PATIENT
  Age: 49 Year
  Sex: Male
  Weight: 91 kg

DRUGS (4)
  1. SANDOSTATIN LAR DEPOT [Suspect]
     Active Substance: OCTREOTIDE ACETATE
     Indication: Acromegaly
     Dosage: 20 MG, QMO (4 WEEKS)
     Route: 030
     Dates: start: 20191224
  2. SANDOSTATIN LAR DEPOT [Suspect]
     Active Substance: OCTREOTIDE ACETATE
     Dosage: 30 MG, QMO (4 WEEKS)
     Route: 030
     Dates: start: 20191224, end: 20200916
  3. SANDOSTATIN LAR DEPOT [Suspect]
     Active Substance: OCTREOTIDE ACETATE
     Dosage: 10 MG, Q4W
     Route: 030
  4. OCTREOTID TEVA [Concomitant]
     Indication: Acromegaly
     Dosage: 10 MG, Q4W
     Route: 030
     Dates: end: 20220913

REACTIONS (7)
  - Insulin-like growth factor increased [Unknown]
  - Blood growth hormone increased [Unknown]
  - Blood pressure systolic increased [Unknown]
  - Blood calcium decreased [Unknown]
  - Body temperature decreased [Unknown]
  - Back pain [Unknown]
  - Arthralgia [Unknown]

NARRATIVE: CASE EVENT DATE: 20200124
